FAERS Safety Report 6376314-5 (Version None)
Quarter: 2009Q3

REPORT INFORMATION
  Report Type: 
  Country: None (occurrence: None)
  Receive Date: 20090922
  Receipt Date: 20090922
  Transmission Date: 20100115
  Serious: Yes (Death)
  Sender: FDA-Public Use
  Company Number: None

PATIENT
  Sex: Female

DRUGS (8)
  1. REVLIMID [Suspect]
     Indication: MULTIPLE MYELOMA
     Dosage: 5MG EVERY OTHER DAY ORALLY
     Route: 048
     Dates: start: 20081001, end: 20090801
  2. FLUOXETINE [Concomitant]
  3. CARISPRODOL [Concomitant]
  4. METHADONE HYDROCHLORIDE [Concomitant]
  5. FENTANYL TRANSDERMAL SYSTEM [Concomitant]
  6. FUROSEMIDE [Concomitant]
  7. NEUPOGEN [Concomitant]
  8. AMLODIPINE [Concomitant]

REACTIONS (1)
  - DEATH [None]
